FAERS Safety Report 9274693 (Version 1)
Quarter: 2013Q2

REPORT INFORMATION
  Report Type: Spontaneous
  Country: GB (occurrence: None)
  Receive Date: 20130429
  Receipt Date: 20130429
  Transmission Date: 20140414
  Serious: Yes (Hospitalization, Other)
  Sender: FDA-Public Use
  Company Number: 2013P1004991

PATIENT
  Age: 77 Year
  Sex: Female

DRUGS (1)
  1. LITHIUM [Suspect]
     Indication: BIPOLAR DISORDER

REACTIONS (5)
  - Hypercalcaemia [None]
  - Nephrogenic diabetes insipidus [None]
  - Hyperparathyroidism [None]
  - Confusional state [None]
  - Urinary incontinence [None]
